FAERS Safety Report 12658814 (Version 1)
Quarter: 2016Q3

REPORT INFORMATION
  Report Type: Spontaneous
  Country: CA (occurrence: CA)
  Receive Date: 20160817
  Receipt Date: 20160817
  Transmission Date: 20161109
  Serious: Yes (Other)
  Sender: FDA-Public Use
  Company Number: CA-VALIDUS PHARMACEUTICALS LLC-CA-2016VAL002452

PATIENT
  Age: 51 Year
  Sex: Female

DRUGS (1)
  1. FUROSEMIDE. [Suspect]
     Active Substance: FUROSEMIDE
     Indication: HYPERALDOSTERONISM
     Dosage: 20 MG, QD

REACTIONS (3)
  - Blood creatine increased [Unknown]
  - Hyperkalaemia [Unknown]
  - Hyponatraemia [Unknown]
